FAERS Safety Report 8969705 (Version 1)
Quarter: 2012Q4

REPORT INFORMATION
  Report Type: 
  Country: US (occurrence: US)
  Receive Date: 20121218
  Receipt Date: 20121218
  Transmission Date: 20130627
  Serious: No
  Sender: FDA-Public Use
  Company Number: US-BRISTOL-MYERS SQUIBB COMPANY-16573966

PATIENT
  Age: 60 Year
  Sex: Male

DRUGS (5)
  1. ABILIFY [Suspect]
  2. OMEPRAZOLE [Concomitant]
  3. BUSPIRONE [Concomitant]
  4. MIRTAZAPINE [Concomitant]
  5. MELATONIN [Concomitant]

REACTIONS (2)
  - Diarrhoea [Unknown]
  - Frequent bowel movements [Unknown]
